FAERS Safety Report 8964213 (Version 3)
Quarter: 2013Q4

REPORT INFORMATION
  Report Type: Spontaneous
  Country: US (occurrence: US)
  Receive Date: 20121214
  Receipt Date: 20131226
  Transmission Date: 20140711
  Serious: Yes (Hospitalization)
  Sender: FDA-Public Use
  Company Number: US-BAYER-2012-130149

PATIENT
  Age: 19 Year
  Sex: Female
  Weight: 104.31 kg

DRUGS (8)
  1. OCELLA [Suspect]
     Dosage: UNK
     Dates: start: 200910, end: 200911
  2. PROAIR HFA [Concomitant]
     Indication: ASTHMA EXERCISE INDUCED
     Dosage: UNK
     Dates: start: 2007
  3. ONE-A-DAY [MINERALS NOS,VITAMINS NOS] [Concomitant]
  4. TAMIFLU [Concomitant]
     Dosage: 75 MG, EVERY 12 HOURS FOR 5 DAYS
     Route: 048
     Dates: start: 20091102
  5. IBUPROFEN [Concomitant]
     Dosage: 2 TABLETS
     Dates: start: 20091102, end: 20091207
  6. TYLENOL #3 [Concomitant]
     Dosage: UNK
     Dates: start: 20091204
  7. OMEPRAZOLE [Concomitant]
     Indication: GASTRITIS
  8. LEVORA [Concomitant]

REACTIONS (7)
  - Biliary colic [None]
  - Cholecystitis chronic [None]
  - Bile duct stone [None]
  - Injury [None]
  - Pain [None]
  - Pain [None]
  - Fear of disease [None]
